FAERS Safety Report 8219229-X (Version None)
Quarter: 2012Q1

REPORT INFORMATION
  Report Type: 
  Country: None (occurrence: None)
  Receive Date: 20120319
  Receipt Date: 20120308
  Transmission Date: 20120608
  Serious: Yes (Death, Other)
  Sender: FDA-Public Use
  Company Number: GB-JNJFOC-20091203111

PATIENT
  Sex: Female
  Weight: 66 kg

DRUGS (20)
  1. CELEBREX [Concomitant]
  2. DIHYDROCODEINE BITARTRATE INJ [Concomitant]
  3. ROSUVASTATIN [Concomitant]
  4. FOSAMAX [Concomitant]
  5. ADCAL [Concomitant]
  6. TRAMADOL HCL [Concomitant]
  7. FERROUS SULFATE TAB [Concomitant]
  8. PREDNISOLONE [Concomitant]
  9. ALENDRONATE SODIUM [Concomitant]
  10. LANSOPRAZOLE [Concomitant]
  11. FLUDROCORTISON [Concomitant]
  12. ACETAMINOPHEN AND CODEINE PHOSPHATE [Concomitant]
  13. LEFLUNOMIDE [Concomitant]
  14. HUMALOG [Concomitant]
  15. QUININE SULFATE [Concomitant]
  16. HYDROCORTISONE [Concomitant]
  17. AZULFIDINE [Concomitant]
  18. REMICADE [Suspect]
     Indication: RHEUMATOID ARTHRITIS
     Route: 042
     Dates: start: 20060919, end: 20090421
  19. LEVOTHYROXINE SODIUM [Concomitant]
  20. FOLIC ACID [Concomitant]

REACTIONS (3)
  - METASTASES TO LIVER [None]
  - METASTATIC NEOPLASM [None]
  - PNEUMONIA [None]
